FAERS Safety Report 7515054-3 (Version None)
Quarter: 2011Q2

REPORT INFORMATION
  Report Type: 
  Country: None (occurrence: None)
  Receive Date: 20110601
  Receipt Date: 20110524
  Transmission Date: 20111010
  Serious: Yes (Other)
  Sender: FDA-Public Use
  Company Number: JP-ASTELLAS-2011JP002021

PATIENT
  Age: 57 Year
  Sex: Female

DRUGS (4)
  1. VESICARE [Suspect]
     Dosage: UNK
     Route: 048
  2. VESICARE [Suspect]
     Indication: NOCTURIA
     Dosage: 5 MG, UNKNOWN/D
     Route: 048
     Dates: start: 20101108
  3. COLD MEDICINE [Concomitant]
     Route: 048
  4. PAIN RELIEF MEDICINE [Concomitant]
     Route: 048

REACTIONS (1)
  - DIABETES INSIPIDUS [None]
